FAERS Safety Report 11715477 (Version 2)
Quarter: 2015Q4

REPORT INFORMATION
  Report Type: Spontaneous
  Country: US (occurrence: US)
  Receive Date: 20151104
  Receipt Date: 20151110
  Transmission Date: 20160304
  Serious: No
  Sender: FDA-Public Use
  Company Number: US-ELI_LILLY_AND_COMPANY-US201103002511

PATIENT
  Age: 66 Year
  Sex: Male

DRUGS (6)
  1. FORTEO [Suspect]
     Active Substance: TERIPARATIDE
     Dosage: 20 UG, DAILY (1/D)
     Route: 065
  2. LUNESTA [Concomitant]
     Active Substance: ESZOPICLONE
     Indication: SLEEP DISORDER
     Dosage: UNK, UNK
  3. PROPECIA                                /SWE/ [Concomitant]
     Indication: ALOPECIA
  4. FORTEO [Suspect]
     Active Substance: TERIPARATIDE
     Indication: OSTEOPOROSIS
     Dosage: 20 UG, DAILY (1/D)
     Route: 065
     Dates: start: 201002
  5. PROPANOL [Concomitant]
     Active Substance: PROPRANOLOL HYDROCHLORIDE
     Indication: PROSTATE CANCER
  6. FORTEO [Suspect]
     Active Substance: TERIPARATIDE
     Dosage: 20 UG, DAILY (1/D)
     Route: 065

REACTIONS (9)
  - Muscle spasms [Recovered/Resolved]
  - Pain in extremity [Recovered/Resolved]
  - Alopecia [Unknown]
  - Inflammation [Unknown]
  - Limb discomfort [Unknown]
  - Muscle strain [Unknown]
  - Musculoskeletal discomfort [Unknown]
  - Muscle spasms [Unknown]
  - Insomnia [Unknown]

NARRATIVE: CASE EVENT DATE: 201011
